FAERS Safety Report 19589482 (Version 1)
Quarter: 2021Q3

REPORT INFORMATION
  Report Type: Spontaneous
  Country: US (occurrence: US)
  Receive Date: 20210721
  Receipt Date: 20210721
  Transmission Date: 20211014
  Serious: No
  Sender: FDA-Public Use
  Company Number: US-GALDERMA-US2021013181

PATIENT

DRUGS (2)
  1. AKLIEF [Suspect]
     Active Substance: TRIFAROTENE
     Indication: ACNE
     Dosage: 1 DOSAGE FORM, QD
     Dates: start: 202104, end: 2021
  2. AKLIEF [Suspect]
     Active Substance: TRIFAROTENE
     Dosage: 1 DOSAGE FORM, QOD
     Dates: start: 20210610, end: 20210615

REACTIONS (5)
  - Intentional underdose [Recovered/Resolved]
  - Off label use [Recovered/Resolved]
  - Acne [Recovered/Resolved]
  - Dry skin [Recovered/Resolved]
  - Erythema [Recovered/Resolved]

NARRATIVE: CASE EVENT DATE: 2021
